FAERS Safety Report 6936846-5 (Version None)
Quarter: 2010Q3

REPORT INFORMATION
  Report Type: 
  Country: None (occurrence: None)
  Receive Date: 20100823
  Receipt Date: 20100812
  Transmission Date: 20110219
  Serious: Yes (Life-Threatening, Hospitalization)
  Sender: FDA-Public Use
  Company Number: TW-BAYER-201036008GPV

PATIENT
  Age: 31 Year
  Sex: Female

DRUGS (3)
  1. MIRENA [Suspect]
     Indication: PRODUCT USED FOR UNKNOWN INDICATION
     Route: 015
     Dates: start: 20100621, end: 20100621
  2. UNKNOWN ANESTHETICS [Suspect]
     Indication: PRODUCT USED FOR UNKNOWN INDICATION
     Dates: start: 20100621
  3. UNKNOWN SEDATIVES [Suspect]
     Indication: PRODUCT USED FOR UNKNOWN INDICATION
     Dates: start: 20100621

REACTIONS (4)
  - APNOEA [None]
  - CARDIAC ARREST [None]
  - SHOCK [None]
  - VAGINAL HAEMORRHAGE [None]
